FAERS Safety Report 13562966 (Version 1)
Quarter: 2020Q3

REPORT INFORMATION
  Report Type: Report from Study
  Country: KR (occurrence: KR)
  Receive Date: 20170519
  Receipt Date: 20170519
  Transmission Date: 20201104
  Serious: Yes (Other)
  Sender: FDA-Public Use
  Company Number: KR-ROCHE-1933928

PATIENT

DRUGS (3)
  1. CERITINIB [Suspect]
     Active Substance: CERITINIB
     Indication: NON-SMALL CELL LUNG CANCER
     Route: 065
  2. ALECTINIB. [Suspect]
     Active Substance: ALECTINIB
     Indication: NON-SMALL CELL LUNG CANCER
     Route: 065
  3. CRIZOTINIB [Suspect]
     Active Substance: CRIZOTINIB
     Indication: NON-SMALL CELL LUNG CANCER
     Route: 048

REACTIONS (15)
  - Decreased appetite [Unknown]
  - Aspartate aminotransferase increased [Unknown]
  - Anaemia [Unknown]
  - Blood creatinine increased [Unknown]
  - Necrotising fasciitis [Unknown]
  - Renal cyst [Unknown]
  - Oedema peripheral [Unknown]
  - Nausea [Unknown]
  - Rash [Unknown]
  - Alanine aminotransferase increased [Unknown]
  - Thrombocytopenia [Unknown]
  - Dizziness [Unknown]
  - Neutropenia [Unknown]
  - Vomiting [Unknown]
  - Abdominal pain upper [Unknown]
